FAERS Safety Report 6491999-0 (Version None)
Quarter: 2009Q4

REPORT INFORMATION
  Report Type: 
  Country: None (occurrence: None)
  Receive Date: 20091208
  Receipt Date: 20091124
  Transmission Date: 20100525
  Serious: Yes (Death)
  Sender: FDA-Public Use
  Company Number: 8055354

PATIENT
  Age: 68 Year
  Sex: Male

DRUGS (3)
  1. PREDNISOLONE [Suspect]
     Indication: IMMUNOSUPPRESSION
  2. TACROLIMUS [Suspect]
     Indication: IMMUNOSUPPRESSION
  3. MYCOPHENOLATE MOFETIL [Suspect]
     Indication: IMMUNOSUPPRESSION

REACTIONS (11)
  - BLINDNESS [None]
  - BONE EROSION [None]
  - BRONCHOPNEUMONIA [None]
  - BRONCHOPULMONARY ASPERGILLOSIS [None]
  - CARDIOPULMONARY FAILURE [None]
  - DISTURBANCE IN ATTENTION [None]
  - EYELID PTOSIS [None]
  - INFECTION IN AN IMMUNOCOMPROMISED HOST [None]
  - OPHTHALMOPLEGIA [None]
  - SEPSIS [None]
  - SINUSITIS ASPERGILLUS [None]
